FAERS Safety Report 6134122-4 (Version None)
Quarter: 2009Q1

REPORT INFORMATION
  Report Type: 
  Country: None (occurrence: None)
  Receive Date: 20090326
  Receipt Date: 20090318
  Transmission Date: 20090719
  Serious: Yes (Other)
  Sender: FDA-Public Use
  Company Number: US-GENENTECH-278258

PATIENT
  Sex: Female
  Weight: 84.354 kg

DRUGS (4)
  1. AVASTIN [Suspect]
     Indication: BREAST CANCER METASTATIC
     Dosage: 600 MG, Q14D
     Route: 042
     Dates: start: 20081208, end: 20090220
  2. TAXOL [Concomitant]
     Indication: BREAST CANCER METASTATIC
     Dosage: 160 G, UNK
  3. TAGAMET [Concomitant]
     Indication: DRUG USE FOR UNKNOWN INDICATION
     Dosage: 300 UNK, UNK
  4. BENADRYL [Concomitant]
     Indication: DRUG USE FOR UNKNOWN INDICATION

REACTIONS (1)
  - VISUAL FIELD DEFECT [None]
